FAERS Safety Report 7206444-7 (Version None)
Quarter: 2011Q1

REPORT INFORMATION
  Report Type: 
  Country: None (occurrence: None)
  Receive Date: 20110103
  Receipt Date: 20101229
  Transmission Date: 20110831
  Serious: Yes (Hospitalization)
  Sender: FDA-Public Use
  Company Number: US-BRISTOL-MYERS SQUIBB COMPANY-15389893

PATIENT
  Age: 70 Year
  Sex: Male
  Weight: 80 kg

DRUGS (16)
  1. PEMETREXED DISODIUM [Suspect]
     Indication: NON-SMALL CELL LUNG CANCER
     Route: 042
     Dates: start: 20100622, end: 20100803
  2. TIMOPTIC [Concomitant]
  3. DIFLUPREDNATE [Concomitant]
  4. VITAMIN B-12 [Concomitant]
     Dates: start: 20100115
  5. BYSTOLIC [Concomitant]
     Indication: HYPERTENSION
  6. CARBOPLATIN [Suspect]
     Indication: NON-SMALL CELL LUNG CANCER
     Dosage: 1DF:6AUC
     Route: 042
     Dates: start: 20100622, end: 20100803
  7. NEXIUM [Concomitant]
     Indication: PEPTIC ULCER
  8. COMPAZINE [Concomitant]
  9. ALLEGRA [Concomitant]
  10. FOLIC ACID [Concomitant]
     Dates: start: 20100115
  11. ZESTRIL [Concomitant]
     Indication: HYPERTENSION
  12. DECADRON [Concomitant]
  13. BEVACIZUMAB [Suspect]
     Indication: NON-SMALL CELL LUNG CANCER
     Route: 042
     Dates: start: 20100622, end: 20100803
  14. MEGACE [Concomitant]
     Indication: WEIGHT DECREASED
     Dates: start: 20100810
  15. ASPIRIN [Concomitant]
  16. CIPROFLOXACIN [Concomitant]
     Indication: URINARY TRACT INFECTION

REACTIONS (1)
  - INAPPROPRIATE ANTIDIURETIC HORMONE SECRETION [None]
